FAERS Safety Report 7919550-6 (Version None)
Quarter: 2011Q4

REPORT INFORMATION
  Report Type: 
  Country: None (occurrence: None)
  Receive Date: 20111116
  Receipt Date: 20111116
  Transmission Date: 20120403
  Serious: Yes (Hospitalization)
  Sender: FDA-Public Use
  Company Number: None

PATIENT
  Age: 80 Year
  Sex: Male
  Weight: 81.81 kg

DRUGS (25)
  1. OXYCODONE HCL [Suspect]
     Indication: PAIN IN EXTREMITY
     Dosage: 5MG Q4HR PRN PO CHRONIC
     Route: 048
  2. SPIRONOLACTONE [Concomitant]
  3. TESSALON [Concomitant]
  4. ALBUTEROL [Concomitant]
  5. GUAIFENESIN [Concomitant]
  6. CARBIDOPA AND LEVODOPA [Concomitant]
  7. COREG [Concomitant]
  8. DULCOLAX [Concomitant]
  9. ULTRAM [Suspect]
     Indication: PAIN IN EXTREMITY
     Dosage: 50MG Q8HR PO CHRONIC
     Route: 048
  10. COLACE [Concomitant]
  11. ACETAMINOPHEN [Concomitant]
  12. FUROSEMIDE [Concomitant]
  13. ARICEPT [Concomitant]
  14. SENOKOT [Concomitant]
  15. PRAVACHOL [Concomitant]
  16. MIRALEX [Concomitant]
  17. PROBENACID [Concomitant]
  18. ASPIRIN [Concomitant]
  19. FLOMAX [Concomitant]
  20. COUMADIN [Concomitant]
  21. KLONOPIN [Suspect]
     Indication: PAIN IN EXTREMITY
     Dosage: 0.5MG QHS PO CHRONIC
     Route: 048
  22. POTASSIUM CHLORIDE [Concomitant]
  23. EMETROL [Concomitant]
  24. MS CONTIN [Concomitant]
  25. M.V.I. [Concomitant]

REACTIONS (2)
  - GASTROINTESTINAL HAEMORRHAGE [None]
  - DEPRESSED LEVEL OF CONSCIOUSNESS [None]
